FAERS Safety Report 5507312-9 (Version None)
Quarter: 2007Q4

REPORT INFORMATION
  Report Type: 
  Country: None (occurrence: None)
  Receive Date: 20071102
  Receipt Date: 20071025
  Transmission Date: 20080405
  Serious: Yes (Other)
  Sender: FDA-Public Use
  Company Number: 2007SP014134

PATIENT
  Age: 42 Year
  Sex: Male

DRUGS (4)
  1. PEG-INTRON [Suspect]
     Indication: HEPATITIS C
     Dosage: 120 MCG;QW;SC ; 80 MCG;QW;SC ; 50 MCG;QW;SC
     Route: 058
     Dates: start: 20070323, end: 20070418
  2. PEG-INTRON [Suspect]
     Indication: HEPATITIS C
     Dosage: 120 MCG;QW;SC ; 80 MCG;QW;SC ; 50 MCG;QW;SC
     Route: 058
     Dates: start: 20070418, end: 20070627
  3. PEG-INTRON [Suspect]
     Indication: HEPATITIS C
     Dosage: 120 MCG;QW;SC ; 80 MCG;QW;SC ; 50 MCG;QW;SC
     Route: 058
     Dates: start: 20070627, end: 20070831
  4. RIBAVIRIN [Suspect]
     Indication: HEPATITIS C
     Dosage: 1000 MG;QD;PO
     Route: 048
     Dates: start: 20070323, end: 20070907

REACTIONS (3)
  - ALANINE AMINOTRANSFERASE INCREASED [None]
  - ASPARTATE AMINOTRANSFERASE INCREASED [None]
  - ASTHENIA [None]
